FAERS Safety Report 22901437 (Version 3)
Quarter: 2024Q3

REPORT INFORMATION
  Report Type: Spontaneous
  Country: KR (occurrence: KR)
  Receive Date: 20230904
  Receipt Date: 20240703
  Transmission Date: 20241017
  Serious: Yes (Other)
  Sender: REGENERON
  Company Number: KR-BAYER-2023A123152

PATIENT
  Age: 65 Year

DRUGS (3)
  1. EYLEA [Suspect]
     Active Substance: AFLIBERCEPT
     Indication: Neovascular age-related macular degeneration
     Dosage: 9 CONSECUTIVE BIMONTHLY AFLIBERCEPT INJECTIONS,SOLUTION FOR INJ, 40MG/ML
     Route: 031
  2. EYLEA [Suspect]
     Active Substance: AFLIBERCEPT
     Dosage: AFTER THE 2 SHORTENED INJECTIONS WITH 5- AND 6-WEEK INTERVAL,SOLUTION FOR INJ, 40MG/ML
     Route: 031
  3. EYLEA [Suspect]
     Active Substance: AFLIBERCEPT
     Dosage: UNK, MAINTAINED DRY AFTER THE ELONGATION OF INJECTION INTERVAL TO 2 MONTHS,SOLUTION FOR INJ, 40MG/ML
     Route: 031

REACTIONS (5)
  - Subretinal fluid [Recovered/Resolved]
  - Retinal oedema [Unknown]
  - Subretinal hyperreflective exudation [Unknown]
  - Inappropriate schedule of product administration [Unknown]
  - Therapeutic product effect incomplete [Unknown]
